FAERS Safety Report 6517633-9 (Version None)
Quarter: 2009Q4

REPORT INFORMATION
  Report Type: 
  Country: None (occurrence: None)
  Receive Date: 20091224
  Receipt Date: 20091216
  Transmission Date: 20100525
  Serious: Yes (Other)
  Sender: FDA-Public Use
  Company Number: PHEH2009US11099

PATIENT
  Sex: Female
  Weight: 73.469 kg

DRUGS (11)
  1. TASIGNA [Suspect]
     Indication: CHRONIC MYELOID LEUKAEMIA
     Dosage: 800 MG, BID
     Route: 048
     Dates: start: 20080925, end: 20081001
  2. TASIGNA [Suspect]
     Dosage: 400 MG, BID
     Route: 048
     Dates: start: 20081001
  3. TASIGNA [Suspect]
     Dosage: 200 MG, BID
     Route: 048
     Dates: start: 20090113
  4. TASIGNA [Suspect]
     Dosage: 400 MG, BID
     Route: 048
  5. OXYCODONE [Concomitant]
     Indication: PAIN
     Dosage: 5 MG, 2-3 TABS Q4PRN
  6. PREMARIN [Concomitant]
     Dosage: 0.625 MG, QD
  7. XANAX [Concomitant]
     Indication: ANXIETY
     Dosage: 0.5 MG, TID
  8. OXYCONTIN [Concomitant]
     Indication: PAIN
     Dosage: 40 MG, BID
  9. GLIPIZIDE [Concomitant]
     Indication: DIABETES MELLITUS
     Dosage: 10 MG, BID
  10. PHENERGAN HCL [Concomitant]
     Dosage: 25 MG, PRN
  11. INFLUENZA VIRUS VACCINE [Concomitant]

REACTIONS (30)
  - ALANINE AMINOTRANSFERASE INCREASED [None]
  - ALLERGIC SINUSITIS [None]
  - ANAEMIA [None]
  - ANXIETY [None]
  - ARTHRALGIA [None]
  - ASPARTATE AMINOTRANSFERASE INCREASED [None]
  - BLOOD BILIRUBIN INCREASED [None]
  - BONE MARROW DISORDER [None]
  - COUGH [None]
  - DEPRESSION [None]
  - DILATATION ATRIAL [None]
  - DYSPNOEA [None]
  - FATIGUE [None]
  - GASTROOESOPHAGEAL REFLUX DISEASE [None]
  - HEPATOTOXICITY [None]
  - HYPERDYNAMIC LEFT VENTRICLE [None]
  - HYPERTENSION [None]
  - MEDICATION ERROR [None]
  - MIDDLE INSOMNIA [None]
  - MYALGIA [None]
  - NAUSEA [None]
  - NIGHT SWEATS [None]
  - PARANASAL SINUS HYPERSECRETION [None]
  - PERICARDIAL EFFUSION [None]
  - PNEUMONIA [None]
  - PRURITUS [None]
  - RENAL FAILURE CHRONIC [None]
  - TREATMENT NONCOMPLIANCE [None]
  - TRICUSPID VALVE INCOMPETENCE [None]
  - UPPER RESPIRATORY TRACT INFECTION [None]
